FAERS Safety Report 5628194-0 (Version None)
Quarter: 2008Q1

REPORT INFORMATION
  Report Type: 
  Country: None (occurrence: None)
  Receive Date: 20080215
  Receipt Date: 20080204
  Transmission Date: 20080703
  Serious: Yes (Death, Life-Threatening, Hospitalization)
  Sender: FDA-Public Use
  Company Number: DE-PFIZER INC-2008011019

PATIENT
  Sex: Female

DRUGS (18)
  1. NEURONTIN [Suspect]
     Indication: PAIN
     Dosage: TEXT:300 MG DAILY
     Route: 048
     Dates: start: 20041201, end: 20041202
  2. CEFUROXIME [Suspect]
     Route: 042
     Dates: start: 20041130, end: 20041202
  3. VOLTAREN [Suspect]
     Route: 048
     Dates: start: 20041202, end: 20041203
  4. ALLOPURINOL [Suspect]
     Route: 048
     Dates: start: 20041209, end: 20041210
  5. CLEXANE [Suspect]
     Route: 058
     Dates: start: 20041125, end: 20041202
  6. ZOCOR [Suspect]
     Route: 048
     Dates: start: 20041202, end: 20041210
  7. NEXIUM [Suspect]
     Route: 048
     Dates: start: 20041202, end: 20041210
  8. PASPERTIN [Suspect]
     Route: 048
     Dates: start: 20041206, end: 20041210
  9. OXAZEPAM [Concomitant]
     Route: 048
     Dates: start: 20041125, end: 20041125
  10. ESIDRIX [Concomitant]
     Route: 048
     Dates: start: 20041125, end: 20041210
  11. PRES PLUS [Concomitant]
     Route: 048
     Dates: start: 20041125, end: 20041210
  12. KALINOR [Concomitant]
     Route: 048
     Dates: start: 20041126, end: 20041204
  13. NOVALGIN [Concomitant]
     Route: 048
     Dates: start: 20041126, end: 20041210
  14. TRAMAL [Concomitant]
     Route: 042
     Dates: start: 20041129, end: 20041129
  15. MUTAFLOR [Concomitant]
     Route: 048
     Dates: start: 20041201, end: 20041211
  16. POTASSIUM CHLORIDE [Concomitant]
     Route: 048
     Dates: start: 20041205, end: 20041210
  17. DEXPANTHENOL [Concomitant]
     Route: 061
     Dates: start: 20041208, end: 20041211
  18. VINCRISTINE [Concomitant]
     Route: 042
     Dates: start: 20041210, end: 20041210

REACTIONS (1)
  - TOXIC EPIDERMAL NECROLYSIS [None]
